FAERS Safety Report 7298455-0 (Version None)
Quarter: 2011Q1

REPORT INFORMATION
  Report Type: 
  Country: None (occurrence: None)
  Receive Date: 20110112
  Receipt Date: 20101204
  Transmission Date: 20110831
  Serious: Yes (Hospitalization, Other)
  Sender: FDA-Public Use
  Company Number: OU-10-039

PATIENT
  Age: 23 Year
  Sex: Male

DRUGS (2)
  1. PIPERACILLIN AND TAZOBACTAM FOR INJECTION USP 2.25G [Suspect]
     Indication: EMPYEMA
     Dosage: 3 X 4.5 G/DAY
  2. CEFEPIME [Suspect]
     Indication: EMPYEMA
     Dosage: 2 X 2.0 G/DAY

REACTIONS (3)
  - DRUG HYPERSENSITIVITY [None]
  - NO THERAPEUTIC RESPONSE [None]
  - DYSPNOEA [None]
